FAERS Safety Report 4434071-3 (Version None)
Quarter: 2004Q3

REPORT INFORMATION
  Report Type: 
  Country: None (occurrence: None)
  Receive Date: 20040825
  Receipt Date: 20040809
  Transmission Date: 20050211
  Serious: Yes (Hospitalization)
  Sender: FDA-Public Use
  Company Number: US_0408104717

PATIENT
  Age: 66 Year
  Sex: Male
  Weight: 76 kg

DRUGS (4)
  1. TADALAFIL [Suspect]
     Indication: ERECTILE DYSFUNCTION
     Dosage: 20 MG/1 AS NEEDED
     Dates: start: 20040728, end: 20040728
  2. PHENYTOIN [Concomitant]
  3. TELMISARTAN [Concomitant]
  4. ACETYLSALICYLIC ACID [Concomitant]

REACTIONS (5)
  - CONVULSION [None]
  - HEADACHE [None]
  - SALIVARY HYPERSECRETION [None]
  - TONGUE BITING [None]
  - TREATMENT NONCOMPLIANCE [None]
